FAERS Safety Report 5713378-3 (Version None)
Quarter: 2008Q2

REPORT INFORMATION
  Report Type: 
  Country: None (occurrence: None)
  Receive Date: 20080422
  Receipt Date: 20080410
  Transmission Date: 20081010
  Serious: Yes (Other)
  Sender: FDA-Public Use
  Company Number: AU-PFIZER INC-2008026035

PATIENT
  Sex: Female
  Weight: 60 kg

DRUGS (4)
  1. CHAMPIX [Suspect]
     Indication: SMOKING CESSATION THERAPY
     Route: 048
     Dates: start: 20080204, end: 20080225
  2. SEROQUEL [Concomitant]
     Indication: BIPOLAR DISORDER
     Route: 048
  3. LEVLEN 28 [Concomitant]
     Indication: CONTRACEPTION
     Route: 048
  4. NASONEX [Concomitant]
     Dosage: TEXT:1 DOSE INHALED DAILY
     Route: 055

REACTIONS (3)
  - BIPOLAR DISORDER [None]
  - DEPRESSION [None]
  - HYPOMANIA [None]
